FAERS Safety Report 8997040 (Version 1)
Quarter: 2013Q1

REPORT INFORMATION
  Report Type: Spontaneous
  Country: GB (occurrence: GB)
  Receive Date: 20130104
  Receipt Date: 20130104
  Transmission Date: 20140127
  Serious: Yes (Life-Threatening, Hospitalization, Other)
  Sender: FDA-Public Use
  Company Number: GB-B.I. PHARMACEUTICALS,INC./RIDGEFIELD-2013-UK-00011UK

PATIENT
  Age: 75 Year
  Sex: Male
  Weight: 70 kg

DRUGS (5)
  1. DABIGATRAN [Suspect]
     Indication: CEREBROVASCULAR ACCIDENT
     Dosage: 110 MG
     Route: 048
     Dates: start: 20121005
  2. CO-AMILOFRUSE [Concomitant]
  3. ENALAPRIL [Concomitant]
  4. FINASTERIDE [Concomitant]
  5. SIMVASTATIN [Concomitant]

REACTIONS (2)
  - Fall [Unknown]
  - Palpitations [Unknown]
